FAERS Safety Report 7147033-2 (Version None)
Quarter: 2010Q4

REPORT INFORMATION
  Report Type: 
  Country: None (occurrence: None)
  Receive Date: 20101209
  Receipt Date: 20100419
  Transmission Date: 20110411
  Serious: Yes (Death)
  Sender: FDA-Public Use
  Company Number: US-ACTELION-A-US2010-35882

PATIENT

DRUGS (16)
  1. BOSENTAN TABLET 62.5 MG US [Suspect]
     Indication: PULMONARY ARTERIAL HYPERTENSION
     Dosage: 62.5 MG, BID
     Route: 048
     Dates: start: 20090730
  2. ASPIRIN [Concomitant]
  3. COREG [Concomitant]
  4. DESIPRAMINE HCL [Concomitant]
  5. FLEXERIL [Concomitant]
  6. ACETAMINOPHEN AND HYDROCODONE BITARTRATE [Concomitant]
  7. KLOR-CON [Concomitant]
  8. LASIX [Concomitant]
  9. LISINOPRIL [Concomitant]
  10. NITROSTAT [Concomitant]
  11. PLAVIX [Concomitant]
  12. PRILOSEC [Concomitant]
  13. PROVENTIL-HFA [Concomitant]
  14. REQUIP [Concomitant]
  15. SENOKOT [Concomitant]
  16. ZOCOR [Concomitant]

REACTIONS (1)
  - DEATH [None]
